FAERS Safety Report 11316791 (Version 1)
Quarter: 2015Q3

REPORT INFORMATION
  Report Type: Spontaneous
  Country: DE (occurrence: None)
  Receive Date: 20150724
  Receipt Date: 20150724
  Transmission Date: 20151125
  Serious: Yes (Other)
  Sender: FDA-Public Use
  Company Number: HRA-CDB20150237

PATIENT
  Age: 30 Year
  Sex: Female

DRUGS (1)
  1. ELLAONE 30 MG TABLETTE (ELLAONE) (ULIPRISTAL ACETATE) [Suspect]
     Active Substance: ULIPRISTAL ACETATE
     Indication: CONTRACEPTION
     Dates: start: 20150525, end: 20150525

REACTIONS (4)
  - Pregnancy after post coital contraception [None]
  - Nausea [None]
  - Foetal death [None]
  - Vaginal haemorrhage [None]

NARRATIVE: CASE EVENT DATE: 2015
